FAERS Safety Report 16406000 (Version 1)
Quarter: 2019Q2

REPORT INFORMATION
  Report Type: Spontaneous
  Country: JP (occurrence: JP)
  Receive Date: 20190607
  Receipt Date: 20190607
  Transmission Date: 20190711
  Serious: Yes (Death)
  Sender: FDA-Public Use
  Company Number: JP-BAYER-2019-050183

PATIENT
  Age: 69 Year
  Sex: Male
  Weight: 62.6 kg

DRUGS (7)
  1. RIBOFLAVIN [Concomitant]
     Active Substance: RIBOFLAVIN
     Dosage: 1 DF, TID
     Route: 048
     Dates: start: 20181113, end: 20190311
  2. RIBOVIX [Concomitant]
     Dosage: 1 DF, TID
     Route: 048
     Dates: start: 20190115, end: 20190311
  3. STIVARGA [Suspect]
     Active Substance: REGORAFENIB
     Indication: COLORECTAL CANCER RECURRENT
     Dosage: DAILY DOSE 160 MG, 18 DAYS CONTINUOUS ADMINISTRATION
     Route: 048
     Dates: start: 20190206, end: 20190223
  4. LOPENA [Concomitant]
     Dosage: UNK
     Route: 048
     Dates: start: 20181204, end: 20190311
  5. AZULENE-GLUTAMINE [Concomitant]
     Dosage: 1 DF, TID
     Route: 048
     Dates: start: 20181113, end: 20190311
  6. BIOFERMIN R [Concomitant]
     Active Substance: DIETARY SUPPLEMENT\PROBIOTICS
     Dosage: 1 G, TID
     Dates: start: 20181204, end: 20190311
  7. PYDOXAL [Concomitant]
     Active Substance: PYRIDOXAL
     Dosage: 1 DF, TID
     Route: 048
     Dates: start: 20181113, end: 20190311

REACTIONS (9)
  - Drug-induced liver injury [Fatal]
  - Blood bilirubin increased [Fatal]
  - Coma hepatic [Fatal]
  - Hepatic function abnormal [Fatal]
  - Pyrexia [Fatal]
  - Intentional product use issue [None]
  - Jaundice [Fatal]
  - Hepatic failure [Fatal]
  - Depressed level of consciousness [Fatal]

NARRATIVE: CASE EVENT DATE: 20190223
